FAERS Safety Report 7718895-2 (Version None)
Quarter: 2011Q3

REPORT INFORMATION
  Report Type: 
  Country: None (occurrence: None)
  Receive Date: 20110830
  Receipt Date: 20110815
  Transmission Date: 20111222
  Serious: No
  Sender: FDA-Public Use
  Company Number: US-B.I. PHARMACEUTICALS,INC./RIDGEFIELD-2009-BP-02303BP

PATIENT
  Sex: Female
  Weight: 72.57 kg

DRUGS (3)
  1. SPIRIVA [Suspect]
     Indication: CHRONIC OBSTRUCTIVE PULMONARY DISEASE
     Dosage: 18 MCG
     Route: 055
     Dates: start: 20060101
  2. SUPPLEMENTS [Concomitant]
     Indication: PROPHYLAXIS
  3. MAXAIR [Concomitant]
     Indication: CHRONIC OBSTRUCTIVE PULMONARY DISEASE

REACTIONS (5)
  - URINARY TRACT INFECTION [None]
  - DRY MOUTH [None]
  - CONSTIPATION [None]
  - DYSPNOEA [None]
  - BRONCHITIS [None]
